FAERS Safety Report 18231381 (Version 5)
Quarter: 2022Q4

REPORT INFORMATION
  Report Type: Report from Study
  Country: US (occurrence: US)
  Receive Date: 20200904
  Receipt Date: 20221214
  Transmission Date: 20230113
  Serious: Yes (Hospitalization, Other)
  Sender: FDA-Public Use
  Company Number: US-INCYTE CORPORATION-2019IN004341

PATIENT

DRUGS (14)
  1. TERBINAFINE [Suspect]
     Active Substance: TERBINAFINE
     Indication: Product used for unknown indication
     Dosage: UNK
     Route: 065
  2. JAKAFI [Suspect]
     Active Substance: RUXOLITINIB
     Indication: Polycythaemia vera
     Dosage: 7.5 MG, QD (QPM)
     Route: 048
     Dates: start: 201904, end: 20190501
  3. JAKAFI [Suspect]
     Active Substance: RUXOLITINIB
     Indication: Myelofibrosis
     Dosage: 30 MG, QD
     Route: 048
  4. JAKAFI [Suspect]
     Active Substance: RUXOLITINIB
     Dosage: 10 MG, QD
     Route: 048
  5. JAKAFI [Suspect]
     Active Substance: RUXOLITINIB
     Dosage: 15 MG, BID
     Route: 048
     Dates: end: 201904
  6. JAKAFI [Suspect]
     Active Substance: RUXOLITINIB
     Dosage: 10 MG, QD
     Route: 048
  7. JAKAFI [Suspect]
     Active Substance: RUXOLITINIB
     Dosage: 15 MG
     Route: 065
  8. JAKAFI [Suspect]
     Active Substance: RUXOLITINIB
     Dosage: 15 MG, QD
     Route: 065
  9. ALLOPURINOL [Concomitant]
     Active Substance: ALLOPURINOL
     Indication: Blood uric acid
     Dosage: 200 MG
     Route: 065
  10. MELATONIN [Concomitant]
     Active Substance: MELATONIN
     Indication: Product used for unknown indication
     Dosage: 10 MG, QD
     Route: 065
  11. VITAMIN C [Concomitant]
     Active Substance: ASCORBIC ACID
     Indication: Product used for unknown indication
     Dosage: UNK
     Route: 065
  12. FISH OIL [Concomitant]
     Active Substance: FISH OIL
     Indication: Product used for unknown indication
     Dosage: UNK
     Route: 065
  13. HERBALS\SAW PALMETTO [Concomitant]
     Active Substance: HERBALS\SAW PALMETTO
     Indication: Product used for unknown indication
     Dosage: UNK
     Route: 065
  14. HERBALS\TURMERIC [Concomitant]
     Active Substance: HERBALS\TURMERIC
     Indication: Product used for unknown indication
     Dosage: UNK
     Route: 065

REACTIONS (32)
  - Bacterial infection [Unknown]
  - Skin cancer [Recovering/Resolving]
  - Haemoglobin decreased [Not Recovered/Not Resolved]
  - Oedema peripheral [Not Recovered/Not Resolved]
  - Gastroenteritis salmonella [Not Recovered/Not Resolved]
  - Fatigue [Not Recovered/Not Resolved]
  - Haematocrit decreased [Not Recovered/Not Resolved]
  - Procedural haemorrhage [Recovering/Resolving]
  - Skin disorder [Unknown]
  - Bladder discomfort [Unknown]
  - Bone marrow disorder [Unknown]
  - Hepatic enzyme increased [Unknown]
  - Nasopharyngitis [Unknown]
  - Dizziness [Unknown]
  - Sluggishness [Unknown]
  - Procedural dizziness [Recovering/Resolving]
  - Pain [Unknown]
  - Headache [Unknown]
  - Contusion [Unknown]
  - Pollakiuria [Unknown]
  - Feeling abnormal [Unknown]
  - Blood uric acid increased [Unknown]
  - Laboratory test abnormal [Unknown]
  - Procedural pain [Recovering/Resolving]
  - Red blood cell count decreased [Unknown]
  - Full blood count abnormal [Recovering/Resolving]
  - Urinary tract infection [Unknown]
  - White blood cell count decreased [Unknown]
  - White blood cell count increased [Unknown]
  - Post procedural contusion [Recovering/Resolving]
  - Intentional dose omission [Unknown]
  - Wrong technique in product usage process [Not Recovered/Not Resolved]

NARRATIVE: CASE EVENT DATE: 20200601
